FAERS Safety Report 15351406 (Version 1)
Quarter: 2018Q3

REPORT INFORMATION
  Report Type: Spontaneous
  Country: US (occurrence: US)
  Receive Date: 20180905
  Receipt Date: 20180905
  Transmission Date: 20181010
  Serious: No
  Sender: FDA-Public Use
  Company Number: US-009507513-1808USA007206

PATIENT
  Sex: Male

DRUGS (3)
  1. PROAIR HFA [Concomitant]
     Active Substance: ALBUTEROL SULFATE
     Dosage: UNK
  2. ASMANEX [Suspect]
     Active Substance: MOMETASONE FUROATE
     Indication: ASTHMA
     Dosage: 2 PUFFS DAILY FOR 1 WEEK, THEN 1 PUFF DAILY FOR 1 WEEK
     Route: 055
     Dates: start: 2014
  3. IRBESARTAN. [Concomitant]
     Active Substance: IRBESARTAN
     Dosage: UNK

REACTIONS (4)
  - Asthma [Recovered/Resolved]
  - Drug diversion [Unknown]
  - Product quality issue [Unknown]
  - Incorrect dose administered by product [Unknown]
